FAERS Safety Report 9065605 (Version 1)
Quarter: 2013Q1

REPORT INFORMATION
  Report Type: Spontaneous
  Country: PH (occurrence: PH)
  Receive Date: 20130201
  Receipt Date: 20130201
  Transmission Date: 20140127
  Serious: Yes (Other)
  Sender: FDA-Public Use
  Company Number: PH-009507513-1301PHL014157

PATIENT
  Age: 63 Year
  Sex: Female

DRUGS (1)
  1. JANUVIA [Suspect]
     Dosage: 100 MG, BID
     Route: 048

REACTIONS (4)
  - Leg amputation [Unknown]
  - Hypertension [Unknown]
  - Blood cholesterol increased [Unknown]
  - Overdose [Unknown]
